FAERS Safety Report 6821224-X (Version None)
Quarter: 2010Q3

REPORT INFORMATION
  Report Type: 
  Country: None (occurrence: None)
  Receive Date: 20100707
  Receipt Date: 20080609
  Transmission Date: 20110219
  Serious: No
  Sender: FDA-Public Use
  Company Number: US-PFIZER INC-2008039023

PATIENT
  Age: 66 Year
  Sex: Female

DRUGS (11)
  1. ZOLOFT [Interacting]
     Route: 048
  2. FUROSEMIDE [Interacting]
     Route: 048
  3. POTASSIUM CITRATE [Interacting]
     Route: 048
  4. NIASPAN [Interacting]
     Indication: BLOOD CHOLESTEROL INCREASED
     Route: 048
     Dates: start: 20070701
  5. NIASPAN [Interacting]
     Indication: BLOOD TRIGLYCERIDES INCREASED
  6. ZETIA [Suspect]
     Route: 048
     Dates: start: 20070701
  7. CARTIA XT [Interacting]
     Indication: HYPERTENSION
     Route: 048
  8. SYNTHROID [Interacting]
     Route: 048
  9. PLAVIX [Interacting]
     Route: 048
  10. NITROGLYCERIN [Concomitant]
     Indication: ARTERIAL OCCLUSIVE DISEASE
  11. NITROGLYCERIN [Concomitant]
     Indication: ARTERIAL SPASM

REACTIONS (4)
  - DRUG INTERACTION [None]
  - HYPERSENSITIVITY [None]
  - PYREXIA [None]
  - URTICARIA [None]
